FAERS Safety Report 4984514-1 (Version None)
Quarter: 2006Q2

REPORT INFORMATION
  Report Type: 
  Country: None (occurrence: None)
  Receive Date: 20060420
  Receipt Date: 20010703
  Transmission Date: 20061013
  Serious: Yes (Other)
  Sender: FDA-Public Use
  Company Number: 6021713

PATIENT
  Age: 38 Year
  Sex: Female

DRUGS (5)
  1. AZATHIOPRINE TABLETS (TABLET) (AZATHIOPRINE) [Suspect]
     Indication: HYPERSENSITIVITY
     Dosage: 150 MG (150 MG, 1 D) ORAL
     Route: 048
     Dates: start: 19980101, end: 20000101
  2. DOXYCYCLINE [Concomitant]
  3. FLUOXETINE [Concomitant]
  4. SYNACTHEN [Concomitant]
  5. DEPOT (TETRACOSACTIDE) [Concomitant]

REACTIONS (2)
  - BREAST CANCER FEMALE [None]
  - UTERINE LEIOMYOMA [None]
